FAERS Safety Report 17287624 (Version 1)
Quarter: 2020Q1

REPORT INFORMATION
  Report Type: Spontaneous
  Country: FR (occurrence: FR)
  Receive Date: 20200120
  Receipt Date: 20200120
  Transmission Date: 20200409
  Serious: Yes (Hospitalization)
  Sender: FDA-Public Use
  Company Number: FR-TEVA-2020-FR-1169128

PATIENT
  Age: 53 Year
  Sex: Female

DRUGS (5)
  1. DIAZEPAM. [Suspect]
     Active Substance: DIAZEPAM
     Indication: POISONING DELIBERATE
     Dosage: 200 MG PER TOTAL
     Route: 048
     Dates: start: 20170303, end: 20170303
  2. RAMIPRIL. [Suspect]
     Active Substance: RAMIPRIL
     Indication: POISONING DELIBERATE
     Dosage: 240 MG PER TOTAL
     Route: 048
     Dates: start: 20170303, end: 20170303
  3. LOXEN 20 MG, COMPRIME SECABLE [Suspect]
     Active Substance: NICARDIPINE HYDROCHLORIDE
     Indication: POISONING DELIBERATE
     Dosage: 20 DOSAGE FORMS PER TOTAL
     Route: 048
     Dates: start: 20170303, end: 20170303
  4. ZOPICLONE [Suspect]
     Active Substance: ZOPICLONE
     Indication: POISONING DELIBERATE
     Dosage: 150 MG PER TOTAL
     Route: 048
     Dates: start: 20170303, end: 20170303
  5. BISOPROLOL (FUMARATE DE) [Suspect]
     Active Substance: BISOPROLOL FUMARATE
     Indication: POISONING DELIBERATE
     Dosage: 212.5 MG PER TOTAL
     Route: 048
     Dates: start: 20170303, end: 20170303

REACTIONS (3)
  - Bradycardia [Recovered/Resolved]
  - Hypotension [Recovered/Resolved]
  - Toxicity to various agents [Recovered/Resolved]

NARRATIVE: CASE EVENT DATE: 20170303
